FAERS Safety Report 10207547 (Version 1)
Quarter: 2014Q2

REPORT INFORMATION
  Report Type: Spontaneous
  Country: US (occurrence: US)
  Receive Date: 20140530
  Receipt Date: 20140530
  Transmission Date: 20141212
  Serious: No
  Sender: FDA-Public Use
  Company Number: US-GLAXOSMITHKLINE-A1049082A

PATIENT
  Age: 52 Year
  Sex: Male

DRUGS (2)
  1. VENTOLIN [Suspect]
     Indication: ASTHMA
     Dosage: 1PUFF SIX TIMES PER DAY
     Route: 055
  2. THEOPHYLLINE [Concomitant]

REACTIONS (3)
  - Nasal congestion [Not Recovered/Not Resolved]
  - Respiratory tract congestion [Unknown]
  - Rhinorrhoea [Unknown]
